FAERS Safety Report 6995672 (Version 8)
Quarter: 2015Q3

REPORT INFORMATION
  Report Type: Report from Study
  Country: AU (occurrence: AU)
  Receive Date: 20090515
  Receipt Date: 20150713
  Transmission Date: 20151125
  Serious: Yes (Hospitalization, Other)
  Sender: FDA-Public Use
  Company Number: PHHY2009AU18490

PATIENT
  Age: 63 Year
  Sex: Female

DRUGS (7)
  1. CLOZARIL [Suspect]
     Active Substance: CLOZAPINE
     Indication: SCHIZOPHRENIA
     Dosage: 75 (UNIT UNSPECIFEID)
     Route: 048
     Dates: start: 19980626
  2. EPILIM [Concomitant]
     Active Substance: VALPROATE SODIUM
     Indication: PRODUCT USED FOR UNKNOWN INDICATION
     Dosage: 500 MG, BID
     Route: 065
  3. CALTRATE [Concomitant]
     Active Substance: CALCIUM CARBONATE
     Indication: PRODUCT USED FOR UNKNOWN INDICATION
     Route: 065
  4. CLOZARIL [Suspect]
     Active Substance: CLOZAPINE
     Dosage: 100 MG, QD
     Route: 048
     Dates: start: 2004
  5. SOLIAN [Concomitant]
     Active Substance: AMISULPRIDE
     Indication: PRODUCT USED FOR UNKNOWN INDICATION
     Dosage: 200 MG, QD
     Route: 065
  6. ASPIRIN. [Concomitant]
     Active Substance: ASPIRIN
     Indication: PRODUCT USED FOR UNKNOWN INDICATION
     Dosage: 100 MG, QD
     Route: 065
  7. MICARDIS [Concomitant]
     Active Substance: TELMISARTAN
     Indication: PRODUCT USED FOR UNKNOWN INDICATION
     Dosage: 80 MG, QD
     Route: 065

REACTIONS (21)
  - Ischaemia [Unknown]
  - Lower respiratory tract infection [Unknown]
  - Malaise [Unknown]
  - Neutrophil count increased [Unknown]
  - Ventricular hypokinesia [Unknown]
  - Myocardial infarction [Unknown]
  - Metabolic alkalosis [Unknown]
  - Chronic obstructive pulmonary disease [Unknown]
  - Pericardial effusion [Unknown]
  - Emphysema [Recovering/Resolving]
  - Cardiac failure congestive [Unknown]
  - Fatigue [Recovering/Resolving]
  - Aortic valve disease [Unknown]
  - Haemoglobin decreased [Unknown]
  - Ventricular hypertrophy [Unknown]
  - Dyspnoea [Recovering/Resolving]
  - White blood cell count increased [Unknown]
  - Respiratory disorder [Unknown]
  - Oedema peripheral [Unknown]
  - Orthopnoea [Unknown]
  - Sinus tachycardia [Unknown]

NARRATIVE: CASE EVENT DATE: 20080812
